FAERS Safety Report 10861845 (Version 1)
Quarter: 2015Q1

REPORT INFORMATION
  Report Type: Spontaneous
  Country: US (occurrence: US)
  Receive Date: 20150224
  Receipt Date: 20150224
  Transmission Date: 20150721
  Serious: Yes (Death)
  Sender: FDA-Public Use
  Company Number: US-BANPHARM-20153503

PATIENT
  Age: 48 Year
  Sex: Female

DRUGS (13)
  1. OXYCODONE [Suspect]
     Active Substance: OXYCODONE
  2. CEPHALEXIN. [Suspect]
     Active Substance: CEPHALEXIN
  3. IBUPROFEN UNKNOWN PRODUCT [Suspect]
     Active Substance: IBUPROFEN
  4. CYCLOBENZAPRINE [Suspect]
     Active Substance: CYCLOBENZAPRINE
  5. ESCITALOPRAM [Suspect]
     Active Substance: ESCITALOPRAM OXALATE
  6. DICLOFENAC [Suspect]
     Active Substance: DICLOFENAC
  7. METHYLPREDNISOLONE. [Suspect]
     Active Substance: METHYLPREDNISOLONE
  8. NITROGLYCERIN. [Suspect]
     Active Substance: NITROGLYCERIN
  9. LISINOPRIL. [Suspect]
     Active Substance: LISINOPRIL
  10. DOXYCYCLINE. [Suspect]
     Active Substance: DOXYCYCLINE
  11. CLONIDINE. [Suspect]
     Active Substance: CLONIDINE
  12. METOPROLOL [Suspect]
     Active Substance: METOPROLOL
  13. AZITHROMYCIN [Suspect]
     Active Substance: AZITHROMYCIN ANHYDROUS

REACTIONS (1)
  - Death [Fatal]
